FAERS Safety Report 5293651-6 (Version None)
Quarter: 2007Q2

REPORT INFORMATION
  Report Type: 
  Country: None (occurrence: None)
  Receive Date: 20070411
  Receipt Date: 20070402
  Transmission Date: 20071010
  Serious: Yes (Death, Hospitalization, Disabling)
  Sender: FDA-Public Use
  Company Number: AU-BAXTER-2007BH003361

PATIENT
  Age: 26 Year
  Sex: Female

DRUGS (11)
  1. DEXAMETHASONE [Suspect]
     Indication: ACUTE LYMPHOCYTIC LEUKAEMIA
     Dosage: DOSE UNIT:UNKNOWN
     Route: 065
  2. METHOTREXATE [Suspect]
     Indication: ACUTE LYMPHOCYTIC LEUKAEMIA
     Route: 042
  3. METHOTREXATE [Suspect]
     Route: 037
  4. METHOTREXATE [Suspect]
     Dosage: DOSE UNIT:UNKNOWN
     Route: 048
  5. METHOTREXATE [Suspect]
     Dosage: DOSE UNIT:UNKNOWN
     Route: 037
  6. CYCLOPHOSPHAMIDE [Suspect]
     Indication: ACUTE LYMPHOCYTIC LEUKAEMIA
     Dosage: DOSE UNIT:UNKNOWN
     Route: 065
  7. VINCRISTINE SULFATE [Suspect]
     Indication: ACUTE LYMPHOCYTIC LEUKAEMIA
     Dosage: DOSE UNIT:UNKNOWN
     Route: 065
  8. DOXORUBICIN GENERIC [Suspect]
     Indication: ACUTE LYMPHOCYTIC LEUKAEMIA
     Dosage: DOSE UNIT:UNKNOWN
     Route: 065
  9. CYTARABINE [Suspect]
     Indication: ACUTE LYMPHOCYTIC LEUKAEMIA
     Route: 037
  10. CYTARABINE [Suspect]
     Dosage: DOSE UNIT:UNKNOWN
     Route: 042
  11. MERCAPTOPURINE [Concomitant]
     Indication: DRUG USE FOR UNKNOWN INDICATION
     Dosage: DOSE UNIT:UNKNOWN
     Route: 065

REACTIONS (15)
  - AREFLEXIA [None]
  - ASTHENIA [None]
  - ATROPHY [None]
  - FAECAL INCONTINENCE [None]
  - LEUKAEMIA RECURRENT [None]
  - LOSS OF PROPRIOCEPTION [None]
  - MALIGNANT NEOPLASM PROGRESSION [None]
  - MYELOPATHY [None]
  - OSTEOMYELITIS [None]
  - PARALYSIS FLACCID [None]
  - PARAPLEGIA [None]
  - SENSORY LOSS [None]
  - SEPSIS [None]
  - SPINAL CORD DISORDER [None]
  - URINARY INCONTINENCE [None]
